FAERS Safety Report 16845700 (Version 2)
Quarter: 2019Q4

REPORT INFORMATION
  Report Type: Spontaneous
  Country: RU (occurrence: RU)
  Receive Date: 20190924
  Receipt Date: 20191015
  Transmission Date: 20200122
  Serious: Yes (Hospitalization, Other)
  Sender: FDA-Public Use
  Company Number: PHHY2019RU221249

PATIENT
  Age: 5 Year
  Sex: Female

DRUGS (2)
  1. AZOPT [Suspect]
     Active Substance: BRINZOLAMIDE
     Indication: INTRAOCULAR PRESSURE INCREASED
  2. AZOPT [Suspect]
     Active Substance: BRINZOLAMIDE
     Indication: ANTERIOR CHAMBER CLEAVAGE SYNDROME
     Dosage: 2 GTT, QD
     Route: 061
     Dates: start: 201905, end: 20190617

REACTIONS (3)
  - Product use issue [Unknown]
  - Intraocular pressure decreased [Recovered/Resolved with Sequelae]
  - Electrocardiogram QT interval abnormal [Recovered/Resolved with Sequelae]

NARRATIVE: CASE EVENT DATE: 20190530
